FAERS Safety Report 8774838 (Version 1)
Quarter: 2012Q4

REPORT INFORMATION
  Report Type: 
  Country: BR (occurrence: BR)
  Receive Date: 20120910
  Receipt Date: 20120910
  Transmission Date: 20130627
  Serious: Yes (Other)
  Sender: FDA-Public Use
  Company Number: BR-JNJFOC-20120901790

PATIENT
  Age: 60 Year

DRUGS (2)
  1. REMICADE [Suspect]
     Indication: CROHN^S DISEASE
     Route: 042
  2. REMICADE [Suspect]
     Indication: CROHN^S DISEASE
     Route: 042
     Dates: start: 20120730

REACTIONS (3)
  - Intervertebral disc protrusion [Not Recovered/Not Resolved]
  - Enchondromatosis [Unknown]
  - Back disorder [Not Recovered/Not Resolved]
